FAERS Safety Report 6326012-9 (Version None)
Quarter: 2009Q3

REPORT INFORMATION
  Report Type: 
  Country: None (occurrence: None)
  Receive Date: 20090824
  Receipt Date: 20090810
  Transmission Date: 20100115
  Serious: Yes (Other)
  Sender: FDA-Public Use
  Company Number: US-ROCHE-613796

PATIENT
  Sex: Male
  Weight: 124.7 kg

DRUGS (8)
  1. PEG-INTERFERON A-2A (RO 25-8310) [Suspect]
     Indication: HEPATITIS C
     Dosage: PRE FILLED SYRINGE, PATIENT IN WEEK 46 OF TREATMENT
     Route: 058
     Dates: start: 20080926
  2. RIBAVIRIN [Suspect]
     Indication: HEPATITIS C
     Dosage: PATIENT IN WEEK 46 OF TREATMENT, DIVIDED DOSE
     Route: 048
     Dates: start: 20080926
  3. PRILOSEC [Concomitant]
     Route: 048
  4. AUROBIN [Concomitant]
     Indication: INSOMNIA
     Dosage: AT NIGHT
     Route: 048
  5. COMPAZINE [Concomitant]
     Indication: NAUSEA
     Route: 048
  6. CYCLOBENZAPRINE [Concomitant]
  7. HYDROCODONE [Concomitant]
  8. AMBIEN [Concomitant]
     Dosage: FREQUENCY: AS NECESSARY (PRN)

REACTIONS (14)
  - AGGRESSION [None]
  - ALOPECIA [None]
  - BLINDNESS [None]
  - CHOLELITHIASIS [None]
  - DEPRESSION [None]
  - DYSGEUSIA [None]
  - FALL [None]
  - HEADACHE [None]
  - HYPOPHAGIA [None]
  - MENISCUS LESION [None]
  - MIGRAINE [None]
  - PAIN [None]
  - SWELLING [None]
  - WEIGHT DECREASED [None]
